FAERS Safety Report 7231640-2 (Version None)
Quarter: 2011Q1

REPORT INFORMATION
  Report Type: 
  Country: None (occurrence: None)
  Receive Date: 20110118
  Receipt Date: 20110111
  Transmission Date: 20110831
  Serious: No
  Sender: FDA-Public Use
  Company Number: US-PFIZER INC-2011008902

PATIENT

DRUGS (1)
  1. ADVIL [Suspect]
     Dosage: 200 MG, UNK
     Dates: start: 20101210

REACTIONS (1)
  - HEADACHE [None]
